FAERS Safety Report 10660972 (Version 1)
Quarter: 2014Q4

REPORT INFORMATION
  Report Type: Spontaneous
  Country: ES (occurrence: ES)
  Receive Date: 20141218
  Receipt Date: 20141218
  Transmission Date: 20150529
  Serious: Yes (Other)
  Sender: FDA-Public Use
  Company Number: ES-009507513-1412ESP005725

PATIENT
  Sex: Female

DRUGS (2)
  1. ESMERON [Suspect]
     Active Substance: ROCURONIUM BROMIDE
     Dosage: UNK
     Route: 040
     Dates: start: 20141203
  2. EPINEPHRINE. [Interacting]
     Active Substance: EPINEPHRINE
     Dosage: UNK
     Route: 042
     Dates: start: 201412

REACTIONS (3)
  - Oxygen saturation decreased [Unknown]
  - Hypertension [Unknown]
  - Incorrect route of drug administration [Unknown]

NARRATIVE: CASE EVENT DATE: 20141203
